FAERS Safety Report 4592806-3 (Version None)
Quarter: 2005Q1

REPORT INFORMATION
  Report Type: 
  Country: None (occurrence: None)
  Receive Date: 20050222
  Receipt Date: 20050210
  Transmission Date: 20050727
  Serious: Yes (Hospitalization)
  Sender: FDA-Public Use
  Company Number: HQWYE211610FEB05

PATIENT
  Age: 62 Year
  Sex: Female

DRUGS (6)
  1. SOMAC (PANTOPRAZOLE, TABLET, DELAYED RELEASE) [Suspect]
     Indication: ABDOMINAL PAIN
     Dosage: 20 MG ^SOME TIME(S)^
     Route: 048
     Dates: start: 20050129
  2. SOMAC (PANTOPRAZOLE, TABLET, DELAYED RELEASE) [Suspect]
     Indication: GASTRIC ULCER
     Dosage: 20 MG ^SOME TIME(S)^
     Route: 048
     Dates: start: 20050129
  3. LIPITOR [Concomitant]
  4. VALIUM [Concomitant]
  5. TAGAMET [Concomitant]
  6. MYLANTA (ALUMINIUM HYDROXIDE GEL, DRIED/DIMETICONE, ACTIVATED/MAGNESIU [Concomitant]

REACTIONS (5)
  - ABDOMINAL PAIN UPPER [None]
  - DYSPEPSIA [None]
  - HEADACHE [None]
  - NAUSEA [None]
  - UNEVALUABLE EVENT [None]
